FAERS Safety Report 7786920-9 (Version None)
Quarter: 2011Q3

REPORT INFORMATION
  Report Type: 
  Country: None (occurrence: None)
  Receive Date: 20110929
  Receipt Date: 20110923
  Transmission Date: 20111222
  Serious: Yes (Hospitalization)
  Sender: FDA-Public Use
  Company Number: DE-BRISTOL-MYERS SQUIBB COMPANY-14871974

PATIENT
  Age: 58 Year
  Sex: Female
  Weight: 120 kg

DRUGS (15)
  1. LORAZEPAM [Concomitant]
  2. HEPARIN [Concomitant]
  3. INSULIN [Concomitant]
     Dosage: INSULIN ALT
  4. PALLADONE [Concomitant]
  5. KALINOR-RETARD P [Concomitant]
  6. PREDNISONE [Concomitant]
  7. ACETYLSALICYLIC ACID SRT [Concomitant]
  8. CEFORAL [Concomitant]
     Dates: start: 20091211
  9. CISPLATIN [Suspect]
     Indication: NON-SMALL CELL LUNG CANCER
     Dosage: WITHDRAWN ON 14DEC09
     Route: 042
     Dates: start: 20090602, end: 20090810
  10. SODIUM CHLORIDE INJ [Concomitant]
  11. LYRICA [Concomitant]
  12. CETUXIMAB [Suspect]
     Indication: NON-SMALL CELL LUNG CANCER
     Dosage: D1 OF CYC 400MG/M2:ON 2JUN09(1D) 250MG/M2:UNK-10AUG 250MG/M2:02SEP-04NOV09(64D) D'CED ON 14DEC09
     Route: 042
     Dates: start: 20090602, end: 20091104
  13. ALIMTA [Suspect]
     Indication: NON-SMALL CELL LUNG CANCER
     Dosage: 500MG/M2: 02JUN09-10AUG09 (70D), 02SEP09-04NOV09 (64D), D'CED ON 14DEC09
     Route: 042
     Dates: start: 20090602, end: 20091104
  14. LASIX [Concomitant]
  15. PANTOPRAZOLE [Concomitant]

REACTIONS (4)
  - RENAL FAILURE [None]
  - OEDEMA PERIPHERAL [None]
  - ANAEMIA [None]
  - STASIS DERMATITIS [None]
